FAERS Safety Report 16918044 (Version 4)
Quarter: 2020Q2

REPORT INFORMATION
  Report Type: Report from Study
  Country: None (occurrence: NL)
  Receive Date: 20191015
  Receipt Date: 20200625
  Transmission Date: 20200713
  Serious: Yes (Other)
  Sender: FDA-Public Use
  Company Number: NL-ABBVIE-19S-114-2827184-00

PATIENT
  Sex: Female
  Weight: 64 kg

DRUGS (4)
  1. METAMUCIL [Concomitant]
     Active Substance: PLANTAGO SEED
     Indication: ABNORMAL FAECES
  2. LEVODOPA/CARBIDOPA [Concomitant]
     Active Substance: CARBIDOPA\LEVODOPA
     Indication: PRODUCT USED FOR UNKNOWN INDICATION
  3. MOVICOLON [Concomitant]
     Active Substance: POLYETHYLENE GLYCOL 3350\POTASSIUM CHLORIDE\SODIUM BICARBONATE\SODIUM CHLORIDE
     Indication: ABNORMAL FAECES
  4. DUODOPA [Suspect]
     Active Substance: CARBIDOPA\LEVODOPA
     Indication: PARKINSON^S DISEASE
     Dosage: MD 4.0; CD 2.0; ED 1.6
     Route: 050
     Dates: start: 20160530

REACTIONS (20)
  - Head discomfort [Not Recovered/Not Resolved]
  - Nervousness [Not Recovered/Not Resolved]
  - Fibroma [Not Recovered/Not Resolved]
  - Stoma site discharge [Recovered/Resolved]
  - Feeling abnormal [Not Recovered/Not Resolved]
  - Stress [Not Recovered/Not Resolved]
  - Lethargy [Not Recovered/Not Resolved]
  - Hypoaesthesia [Not Recovered/Not Resolved]
  - Dyskinesia [Not Recovered/Not Resolved]
  - Apnoea [Not Recovered/Not Resolved]
  - Limb discomfort [Not Recovered/Not Resolved]
  - Memory impairment [Not Recovered/Not Resolved]
  - On and off phenomenon [Not Recovered/Not Resolved]
  - Psychiatric symptom [Not Recovered/Not Resolved]
  - Freezing phenomenon [Not Recovered/Not Resolved]
  - Abnormal dreams [Not Recovered/Not Resolved]
  - Cognitive disorder [Not Recovered/Not Resolved]
  - Mental impairment [Not Recovered/Not Resolved]
  - Weight decreased [Recovered/Resolved]
  - Somnolence [Not Recovered/Not Resolved]

NARRATIVE: CASE EVENT DATE: 2019
